FAERS Safety Report 7987134-X (Version None)
Quarter: 2011Q4

REPORT INFORMATION
  Report Type: 
  Country: None (occurrence: None)
  Receive Date: 20111216
  Receipt Date: 20110419
  Transmission Date: 20120403
  Serious: No
  Sender: FDA-Public Use
  Company Number: US-BRISTOL-MYERS SQUIBB COMPANY-15622137

PATIENT
  Age: 37 Year
  Sex: Female
  Weight: 86 kg

DRUGS (5)
  1. NEXIUM [Concomitant]
  2. KLONOPIN [Concomitant]
     Dosage: DOSAGE: AT BEDTIME
  3. DOXYCYCLINE [Concomitant]
     Indication: BRONCHITIS
  4. ABILIFY [Suspect]
     Dates: start: 20110217
  5. CYMBALTA [Concomitant]

REACTIONS (5)
  - FRUSTRATION [None]
  - ANXIETY [None]
  - AGGRESSION [None]
  - IRRITABILITY [None]
  - BRONCHITIS [None]
